FAERS Safety Report 10522716 (Version 1)
Quarter: 2014Q4

REPORT INFORMATION
  Report Type: Spontaneous
  Country: CH (occurrence: None)
  Receive Date: 20141014
  Receipt Date: 20141014
  Transmission Date: 20150528
  Serious: Yes (Hospitalization)
  Sender: FDA-Public Use
  Company Number: 20140644

PATIENT
  Age: 39 Year
  Sex: Female

DRUGS (4)
  1. CERAZETTE (DESOGESTREL) [Concomitant]
  2. TRIATEC (RAMIPRIL) [Concomitant]
     Active Substance: RAMIPRIL
  3. FERINJECT [Suspect]
     Active Substance: FERRIC CARBOXYMALTOSE
     Dosage: 1GM, 1 IN 1D)
     Dates: start: 20140909, end: 20140909
  4. ATACAND [Concomitant]
     Active Substance: CANDESARTAN CILEXETIL

REACTIONS (11)
  - Haemoglobin decreased [None]
  - Hypotension [None]
  - Vomiting [None]
  - Anaemia [None]
  - General physical health deterioration [None]
  - Drug ineffective [None]
  - Injection site pain [None]
  - Cold sweat [None]
  - Diarrhoea [None]
  - Malaise [None]
  - Abdominal pain [None]

NARRATIVE: CASE EVENT DATE: 20140909
